FAERS Safety Report 5484725-5 (Version None)
Quarter: 2007Q4

REPORT INFORMATION
  Report Type: 
  Country: None (occurrence: None)
  Receive Date: 20071010
  Receipt Date: 20070924
  Transmission Date: 20080405
  Serious: Yes (Other)
  Sender: FDA-Public Use
  Company Number: 8027164

PATIENT
  Age: 78 Year
  Sex: Male

DRUGS (4)
  1. KEPPRA [Suspect]
     Indication: EPILEPSY
     Dosage: 750 MG/D PO
     Route: 048
     Dates: start: 20070101
  2. TRILEPTAL [Concomitant]
  3. PREVISCAN [Concomitant]
  4. TANAKAN [Concomitant]

REACTIONS (2)
  - DYSPEPSIA [None]
  - THROMBOCYTOPENIA [None]
